FAERS Safety Report 9571202 (Version 2)
Quarter: 2014Q3

REPORT INFORMATION
  Report Type: Spontaneous
  Country: US (occurrence: None)
  Receive Date: 20130927
  Receipt Date: 20140702
  Transmission Date: 20150326
  Serious: Yes (Other)
  Sender: FDA-Public Use
  Company Number: 2013P1019465

PATIENT
  Age: 49 Year
  Sex: Female
  Weight: 51.71 kg

DRUGS (20)
  1. CYTOMEL (LIOTHYRONINE SODIUM) (25 MICROGRAM, TABLETS) (LIOTHYRONINE SODIUM) [Concomitant]
  2. HCL (HYDROCHLORIC ACID) (HYDROCHLORIC ACID) [Concomitant]
  3. MAXB-ND (B COMPLEX) (NICOTINAM, W/PYRIDOXI. HCL/RIBOFL./THIAM.HCL) (PYRIDOXINE HYDROCHLORIDE, THIAMINE HYDROCHLORIDE, RIBOFLAVIN, NICOTINAMIDE) [Concomitant]
  4. LIVER-ND (ALL OTHER THERAPEUTIC PRODUCTS) [Concomitant]
  5. ZOFRAN (ONDANSETRON HYDROCHLORIDE) (UNKNOWN) (ONDANSETRON HYDROCHLORIDE) [Concomitant]
  6. VITAMIN E (TOCOPHEROL) (TOCOPHEROL) [Concomitant]
  7. VITAMIN C (ASCORBIC ACID) (250 MILLIGRAM, TABLETS) (ASCORBIC ACID) [Concomitant]
  8. TIROSINT (LEVOTHYROXINE SODIUM) (75 MICROGRAM, CAPSULES) (LEVOTHYROXINE SODIUM) [Concomitant]
  9. VITAMIN B1 (THIAMINE HYDROCHLORIDE) (THIAMINE HYDROCHLORIDE) [Concomitant]
  10. RHAMNOSUS GG/INULIN (BIFIDOBACTERIUM LACTIS) (UNKNOWN) (BIFIDOBACTERIUM LACTIS) [Concomitant]
  11. PROMETHAZINE HCL [Suspect]
     Active Substance: PROMETHAZINE HYDROCHLORIDE
     Indication: ABDOMINAL PAIN
     Dosage: 1 IN 1 TOTAL, INTRAVENOUS (NOT OTHERWISE SPECIFIED)?
     Route: 042
     Dates: start: 201308, end: 201308
  12. HCL ACTIVATOR (ALL OTHER THERAPEUTIC PRODUCTS) [Concomitant]
  13. VITAMIN D3 SERUM (COLECALCIFEROL) (CAPSULES0 (COLECALCIFEROL) [Concomitant]
  14. OMEGA-3 FATTY ACIDS (OMEGA-3 FATTY ACIDS) (1000 MILLIGRAM, CAPSULES0 (OMEGA-3 FATTY ACDIS) [Concomitant]
  15. KLOR-CON M20 (ALL OTHER THERAPEUTIC PRODUCTS) [Concomitant]
  16. INTESTICIDIN (ALL OTHER THERAPEUTIC PRODUCTS) [Concomitant]
  17. PROMETHAZINE HCL [Suspect]
     Active Substance: PROMETHAZINE HYDROCHLORIDE
     Indication: NAUSEA
     Dosage: 1 IN 1 TOTAL, INTRAVENOUS (NOT OTHERWISE SPECIFIED)?
     Route: 042
     Dates: start: 201308, end: 201308
  18. GALACTAN (BIFIDOBACTERIUM LACTIS) (BIFIDOBACTERIUM LACTIS) [Concomitant]
  19. GALLBLADDER-ND  PROBIOTIC (BIFIDOBACTERIUM LACTIS) (BIFIDOBACTERIUM LACTIS) [Concomitant]
  20. MMUNO-ND (ALL OTHER THERAPEUTIC PRODUCTS) [Concomitant]

REACTIONS (20)
  - Hyperhidrosis [None]
  - Nausea [None]
  - Dermatitis herpetiformis [None]
  - Constipation [None]
  - Dyspnoea [None]
  - Back pain [None]
  - Coeliac disease [None]
  - Insomnia [None]
  - Contusion [None]
  - Vision blurred [None]
  - Pruritus [None]
  - Injection site pain [None]
  - Swollen tongue [None]
  - Cholelithiasis [None]
  - Ataxia [None]
  - Syncope [None]
  - Memory impairment [None]
  - Screaming [None]
  - Heart rate increased [None]
  - Feeling abnormal [None]

NARRATIVE: CASE EVENT DATE: 201308
